FAERS Safety Report 22239135 (Version 3)
Quarter: 2024Q3

REPORT INFORMATION
  Report Type: Spontaneous
  Country: US (occurrence: US)
  Receive Date: 20230421
  Receipt Date: 20240731
  Transmission Date: 20241017
  Serious: No
  Sender: AURINIA PHARMACEUTICALS
  Company Number: US-AURINIA PHARMACEUTICALS INC.-AUR-003333

PATIENT
  Sex: Male

DRUGS (17)
  1. LUPKYNIS [Suspect]
     Active Substance: VOCLOSPORIN
     Indication: Lupus nephritis
     Dosage: 23.7 MILLIGRAM, BID
     Route: 048
     Dates: start: 20230410
  2. LUPKYNIS [Suspect]
     Active Substance: VOCLOSPORIN
     Dosage: 23.7 MILLIGRAM, BID
     Route: 048
     Dates: start: 20230411
  3. DELTASONE [Concomitant]
     Active Substance: PREDNISONE
     Indication: Product used for unknown indication
     Dosage: 30 MILLIGRAM, BID
     Route: 048
     Dates: start: 20230414
  4. DELTASONE [Concomitant]
     Active Substance: PREDNISONE
     Dosage: 20 MILLIGRAM, TID
     Route: 048
     Dates: start: 20230418, end: 20230516
  5. LASIX [Concomitant]
     Active Substance: FUROSEMIDE
     Indication: Product used for unknown indication
     Dosage: 40 MILLIGRAM, BID
     Route: 048
     Dates: start: 20230417, end: 20230517
  6. PRINIVIL [Concomitant]
     Active Substance: LISINOPRIL
     Indication: Product used for unknown indication
     Dosage: 40 MILLIGRAM, QD
     Route: 048
     Dates: start: 20230418, end: 20230516
  7. DIFLUCAN [Concomitant]
     Active Substance: FLUCONAZOLE
     Indication: Product used for unknown indication
     Dosage: 100 MILLIGRAM, QD
     Route: 048
     Dates: start: 20230418, end: 20230518
  8. HYDROXYCHLOROQUINE [Concomitant]
     Active Substance: HYDROXYCHLOROQUINE
     Indication: Product used for unknown indication
     Dosage: 400 MILLIGRAM, QD
     Route: 048
     Dates: start: 20230418, end: 20230516
  9. CELLCEPT [Concomitant]
     Active Substance: MYCOPHENOLATE MOFETIL
     Indication: Product used for unknown indication
     Dosage: 500 MILLIGRAM, BID
     Route: 048
     Dates: start: 20230417, end: 20230516
  10. PROTONIX [Concomitant]
     Active Substance: PANTOPRAZOLE SODIUM
     Indication: Product used for unknown indication
     Dosage: 40 MILLIGRAM, QD
     Route: 048
     Dates: start: 20230417, end: 20230516
  11. SEROQUEL [Concomitant]
     Active Substance: QUETIAPINE FUMARATE
     Indication: Product used for unknown indication
     Dosage: 100 MILLIGRAM, QD, NIGHTLY
     Route: 048
  12. SODIUM BICARBONATE [Concomitant]
     Active Substance: SODIUM BICARBONATE
     Indication: Product used for unknown indication
     Dosage: 650 MILLIGRAM, BID
     Route: 048
     Dates: start: 20230417, end: 20230517
  13. BACTRIM [Concomitant]
     Active Substance: SULFAMETHOXAZOLE\TRIMETHOPRIM
     Indication: Product used for unknown indication
     Dosage: 400-80 MG QD
     Route: 048
     Dates: start: 20230418, end: 20230508
  14. MYCOPHENOLATE MOFETIL [Concomitant]
     Active Substance: MYCOPHENOLATE MOFETIL
     Indication: Product used for unknown indication
  15. PLAQUENIL [Concomitant]
     Active Substance: HYDROXYCHLOROQUINE SULFATE
     Indication: Product used for unknown indication
  16. ZYLOPRIM [Concomitant]
     Active Substance: ALLOPURINOL
     Indication: Product used for unknown indication
     Dosage: 100 MILLIGRAM, QD
  17. ANDROGEL [Concomitant]
     Active Substance: TESTOSTERONE
     Indication: Product used for unknown indication
     Dosage: 1.25G PLACED ON THE SKIN DAILY 3 PUMPS

REACTIONS (4)
  - Stress [Unknown]
  - Vaginal haemorrhage [Unknown]
  - Hypotension [Unknown]
  - Hypertension [Unknown]
